FAERS Safety Report 6293772-5 (Version None)
Quarter: 2009Q3

REPORT INFORMATION
  Report Type: 
  Country: None (occurrence: None)
  Receive Date: 20090803
  Receipt Date: 20090730
  Transmission Date: 20100115
  Serious: No
  Sender: FDA-Public Use
  Company Number: US-B.I. PHARMACEUTICALS,INC./RIDGEFIELD-2009-BP-07285BP

PATIENT
  Age: 65 Year
  Sex: Female

DRUGS (5)
  1. MIRAPEX [Suspect]
     Indication: PARKINSON'S DISEASE
     Dosage: 0.3125 MG
     Route: 048
     Dates: start: 20090515
  2. CYTOMEL [Concomitant]
     Indication: THYROID DISORDER
     Dates: start: 19970101
  3. LEVOXYL [Concomitant]
     Indication: THYROID DISORDER
     Dates: start: 19970101
  4. PREMARIN [Concomitant]
     Indication: HORMONE REPLACEMENT THERAPY
  5. AYGESTIN [Concomitant]
     Indication: HORMONE REPLACEMENT THERAPY

REACTIONS (17)
  - ABDOMINAL DISCOMFORT [None]
  - BLOOD PRESSURE ABNORMAL [None]
  - BLOOD PRESSURE INCREASED [None]
  - CONTUSION [None]
  - DRY MOUTH [None]
  - DYSTONIA [None]
  - FATIGUE [None]
  - HEADACHE [None]
  - HYPERHIDROSIS [None]
  - MEMORY IMPAIRMENT [None]
  - MUSCLE SPASMS [None]
  - NASAL CONGESTION [None]
  - NAUSEA [None]
  - POLLAKIURIA [None]
  - RASH MACULO-PAPULAR [None]
  - TREMOR [None]
  - VISUAL ACUITY REDUCED [None]
